FAERS Safety Report 25980511 (Version 1)
Quarter: 2025Q4

REPORT INFORMATION
  Report Type: Spontaneous
  Country: EU (occurrence: EU)
  Receive Date: 20251030
  Receipt Date: 20251030
  Transmission Date: 20260118
  Serious: Yes (Death, Life-Threatening, Hospitalization, Disabling, Other)
  Sender: ELI LILLY AND COMPANY
  Company Number: None

PATIENT
  Age: 68 Year
  Sex: Male
  Weight: 77 kg

DRUGS (17)
  1. ERBITUX [Suspect]
     Active Substance: CETUXIMAB
     Indication: Colon cancer
     Dosage: 1000 MG, OTHER
     Route: 042
     Dates: start: 20250723, end: 20250912
  2. PROPAFENONE [Concomitant]
     Active Substance: PROPAFENONE
     Indication: Atrial fibrillation
     Dosage: 300 MG, UNK
  3. NIMESULIDE [Concomitant]
     Active Substance: NIMESULIDE
     Indication: Chemotherapy side effect prophylaxis
     Dosage: 100 MG, UNK
     Route: 048
     Dates: start: 20250723, end: 20250912
  4. IRINOTECAN/KABI [Concomitant]
     Indication: Colon cancer
     Dosage: 277.5 MG, UNK
     Route: 042
     Dates: end: 20250912
  5. IRINOTECAN/KABI [Concomitant]
     Route: 042
     Dates: start: 20250723
  6. FAMOTIDINE [Concomitant]
     Active Substance: FAMOTIDINE
     Indication: Chemotherapy side effect prophylaxis
     Dosage: 20 MG, UNK
     Route: 048
     Dates: start: 20250723, end: 20250912
  7. DEXAMETHASONE SODIUM PHOSPHATE [Concomitant]
     Active Substance: DEXAMETHASONE SODIUM PHOSPHATE
     Indication: Chemotherapy side effect prophylaxis
     Dosage: 12 MG, UNK
     Route: 042
     Dates: start: 20250723, end: 20250912
  8. FLUOROURACIL [Concomitant]
     Active Substance: FLUOROURACIL
     Indication: Colon cancer
     Dosage: 2400 MG/M2, UNK
     Route: 042
     Dates: start: 20250723, end: 20250912
  9. FLUOROURACIL [Concomitant]
     Active Substance: FLUOROURACIL
     Dosage: 2400 MG/M2, UNK
     Route: 042
     Dates: end: 20250912
  10. ELIQUIS [Concomitant]
     Active Substance: APIXABAN
     Indication: Atrial fibrillation
     Dosage: 2.5 MG, UNK
     Route: 048
  11. LEUCOVORIN CALCIUM [Concomitant]
     Active Substance: LEUCOVORIN CALCIUM
     Indication: Colon cancer
     Dosage: 3000 MG, UNK
     Route: 042
     Dates: start: 20250723, end: 20250912
  12. GRANISETRON [Concomitant]
     Active Substance: GRANISETRON
     Indication: Chemotherapy side effect prophylaxis
     Dosage: 3 MG, UNK
     Route: 042
     Dates: start: 20250723, end: 20250912
  13. ATROPINE SULFATE [Concomitant]
     Active Substance: ATROPINE SULFATE
     Indication: Chemotherapy side effect prophylaxis
     Dosage: 250 UG, UNK
     Route: 058
     Dates: start: 20250723, end: 20250912
  14. POTASSIUM CHLORIDE [Concomitant]
     Active Substance: POTASSIUM CHLORIDE
     Indication: Mineral supplementation
     Dosage: 1 G, UNK
     Route: 048
  15. DISULFIRAM [Concomitant]
     Active Substance: DISULFIRAM
     Indication: Product used for unknown indication
     Dosage: 400 MG, UNK
  16. BISULEPIN [Concomitant]
     Active Substance: BISULEPIN
     Indication: Chemotherapy side effect prophylaxis
     Dosage: 1 MG, UNK
     Route: 042
     Dates: start: 20250723, end: 20250912
  17. SULFAMETHOXAZOLE\TRIMETHOPRIM [Concomitant]
     Active Substance: SULFAMETHOXAZOLE\TRIMETHOPRIM
     Indication: Product used for unknown indication
     Dosage: 960 MG, UNK
     Dates: start: 202508, end: 202508

REACTIONS (2)
  - Toxic epidermal necrolysis [Fatal]
  - Fournier^s gangrene [Fatal]

NARRATIVE: CASE EVENT DATE: 20250922
